FAERS Safety Report 7536413-9 (Version None)
Quarter: 2011Q2

REPORT INFORMATION
  Report Type: 
  Country: None (occurrence: None)
  Receive Date: 20110608
  Receipt Date: 20110608
  Transmission Date: 20111010
  Serious: Yes (Hospitalization)
  Sender: FDA-Public Use
  Company Number: None

PATIENT
  Age: 26 Year
  Sex: Male
  Weight: 61.1 kg

DRUGS (11)
  1. NAPROXEN [Concomitant]
  2. ALIMTA [Suspect]
     Indication: SARCOMA
  3. DEXAMETHASONE [Concomitant]
  4. OXYCONTIN [Concomitant]
  5. SENNA-MINT WAF [Concomitant]
  6. ATIVAN [Concomitant]
  7. TAXOTERE [Suspect]
     Indication: SARCOMA
  8. FLEXERIL [Concomitant]
  9. OXYCODONE HCL [Concomitant]
  10. PROCHLORPERAZINE TAB [Concomitant]
  11. VOLTAREN-XR [Concomitant]

REACTIONS (4)
  - PAIN [None]
  - SWELLING [None]
  - HYPOAESTHESIA [None]
  - HYPOAESTHESIA FACIAL [None]
